FAERS Safety Report 5985952-0 (Version None)
Quarter: 2008Q4

REPORT INFORMATION
  Report Type: 
  Country: None (occurrence: None)
  Receive Date: 20081205
  Receipt Date: 20081205
  Transmission Date: 20090506
  Serious: Yes (Other)
  Sender: FDA-Public Use
  Company Number: None

PATIENT
  Age: 29 Year
  Sex: Male
  Weight: 79.3795 kg

DRUGS (1)
  1. PROAIR HFA [Suspect]
     Indication: ASTHMA
     Dosage: 4 PUFFS DAILY PO
     Route: 048
     Dates: start: 20081117, end: 20081204

REACTIONS (6)
  - DEVICE INEFFECTIVE [None]
  - DRUG INEFFECTIVE [None]
  - ECONOMIC PROBLEM [None]
  - INAPPROPRIATE SCHEDULE OF DRUG ADMINISTRATION [None]
  - PRODUCT QUALITY ISSUE [None]
  - UNDERDOSE [None]
